FAERS Safety Report 8553717 (Version 7)
Quarter: 2013Q1

REPORT INFORMATION
  Report Type: Spontaneous
  Country: US (occurrence: US)
  Receive Date: 20120509
  Receipt Date: 20130315
  Transmission Date: 20140127
  Serious: Yes (Hospitalization, Other)
  Sender: FDA-Public Use
  Company Number: US-ASTRAZENECA-2012SE17309

PATIENT
  Age: 80 Year
  Sex: Female
  Weight: 84.4 kg

DRUGS (2)
  1. NEXIUM [Suspect]
     Route: 048
  2. CELEBREX [Concomitant]

REACTIONS (17)
  - Cataract [Unknown]
  - Malaise [Unknown]
  - Diarrhoea [Unknown]
  - Gait disturbance [Unknown]
  - Adverse event [Unknown]
  - Regurgitation [Unknown]
  - Dysgraphia [Unknown]
  - Speech disorder [Unknown]
  - Visual impairment [Unknown]
  - Hypoacusis [Unknown]
  - Nervousness [Unknown]
  - Memory impairment [Unknown]
  - Sleep apnoea syndrome [Unknown]
  - Bereavement [Unknown]
  - Nasopharyngitis [Unknown]
  - Confusional state [Unknown]
  - Drug dose omission [Unknown]
